FAERS Safety Report 14936589 (Version 1)
Quarter: 2018Q2

REPORT INFORMATION
  Report Type: Spontaneous
  Country: US (occurrence: US)
  Receive Date: 20180525
  Receipt Date: 20180525
  Transmission Date: 20180711
  Serious: No
  Sender: FDA-Public Use
  Company Number: US-TEVA-770750ACC

PATIENT
  Age: 8 Year
  Sex: Male

DRUGS (2)
  1. CLONIDINE TDS [Suspect]
     Active Substance: CLONIDINE
     Indication: ATTENTION DEFICIT/HYPERACTIVITY DISORDER
     Dosage: .1 MILLIGRAM DAILY;
     Route: 065
  2. CLONIDINE TDS [Suspect]
     Active Substance: CLONIDINE
     Indication: IMPULSIVE BEHAVIOUR

REACTIONS (2)
  - Product use in unapproved indication [Unknown]
  - Drug effect incomplete [Unknown]
